FAERS Safety Report 13257372 (Version 1)
Quarter: 2017Q1

REPORT INFORMATION
  Report Type: Spontaneous
  Country: US (occurrence: US)
  Receive Date: 20170221
  Receipt Date: 20170221
  Transmission Date: 20170428
  Serious: Yes (Hospitalization)
  Sender: FDA-Public Use
  Company Number: US-ELI_LILLY_AND_COMPANY-US201702006807

PATIENT
  Age: 43 Year
  Sex: Male

DRUGS (3)
  1. TRENBOLONE [Interacting]
     Active Substance: TRENBOLONE
     Indication: SUBSTANCE USE
     Dosage: UNK, OTHER
     Route: 051
  2. ESCITALOPRAM [Concomitant]
     Active Substance: ESCITALOPRAM OXALATE
     Indication: PRODUCT USED FOR UNKNOWN INDICATION
     Dosage: 20 MG, UNKNOWN
     Route: 065
  3. TESTOSTERONE. [Suspect]
     Active Substance: TESTOSTERONE
     Indication: SUBSTANCE USE
     Dosage: UNK, OTHER
     Route: 065

REACTIONS (4)
  - Acute kidney injury [Recovering/Resolving]
  - Renal infarct [Recovering/Resolving]
  - Drug interaction [Unknown]
  - Intentional product misuse [Recovering/Resolving]
